FAERS Safety Report 7655766-4 (Version None)
Quarter: 2011Q3

REPORT INFORMATION
  Report Type: 
  Country: None (occurrence: None)
  Receive Date: 20110728
  Receipt Date: 20110715
  Transmission Date: 20111222
  Serious: Yes (Hospitalization)
  Sender: FDA-Public Use
  Company Number: 2010SP006068

PATIENT
  Age: 37 Year
  Sex: Female
  Weight: 104.3273 kg

DRUGS (2)
  1. COUMADIN [Suspect]
     Indication: DEEP VEIN THROMBOSIS
     Dosage: 5 MG;
     Dates: start: 20080101
  2. NUVARING [Suspect]
     Indication: CONTRACEPTION
     Dates: start: 20070901, end: 20080201

REACTIONS (40)
  - VULVOVAGINAL DISCOMFORT [None]
  - POST THROMBOTIC SYNDROME [None]
  - PAIN IN EXTREMITY [None]
  - INTERVERTEBRAL DISC DEGENERATION [None]
  - PYREXIA [None]
  - DIARRHOEA [None]
  - URINARY TRACT INFECTION STAPHYLOCOCCAL [None]
  - DECREASED ACTIVITY [None]
  - HYPERCOAGULATION [None]
  - ACCIDENT AT WORK [None]
  - CHOLECYSTITIS [None]
  - NAUSEA [None]
  - HAEMOGLOBIN INCREASED [None]
  - LYMPHOEDEMA [None]
  - DERMATITIS CONTACT [None]
  - SINUSITIS [None]
  - CONSTIPATION [None]
  - DEEP VEIN THROMBOSIS [None]
  - MENORRHAGIA [None]
  - IMPAIRED WORK ABILITY [None]
  - ROSACEA [None]
  - DERMAL CYST [None]
  - ARTHRALGIA [None]
  - PERIPHERAL COLDNESS [None]
  - BLOOD HOMOCYSTEINE INCREASED [None]
  - FASCIITIS [None]
  - INJURY [None]
  - JOINT RANGE OF MOTION DECREASED [None]
  - HAEMATOCRIT INCREASED [None]
  - INTERNATIONAL NORMALISED RATIO INCREASED [None]
  - ABDOMINAL PAIN UPPER [None]
  - CELLULITIS [None]
  - FALL [None]
  - ACUTE SINUSITIS [None]
  - GENE MUTATION [None]
  - MEDICAL DEVICE COMPLICATION [None]
  - ANTIPHOSPHOLIPID SYNDROME [None]
  - VOMITING [None]
  - MYOSITIS [None]
  - OEDEMA [None]
